FAERS Safety Report 5950830-X (Version None)
Quarter: 2008Q4

REPORT INFORMATION
  Report Type: 
  Country: None (occurrence: None)
  Receive Date: 20081112
  Receipt Date: 20081104
  Transmission Date: 20090506
  Serious: Yes (Other)
  Sender: FDA-Public Use
  Company Number: FR-GILEAD-2008-0018891

PATIENT
  Sex: Female

DRUGS (3)
  1. TRUVADA [Suspect]
     Indication: HIV INFECTION
     Route: 048
     Dates: start: 20080409, end: 20080509
  2. TRUVADA [Suspect]
     Route: 048
     Dates: start: 20080510
  3. SUSTIVA [Suspect]
     Indication: HIV INFECTION
     Route: 048
     Dates: start: 20080409, end: 20080509

REACTIONS (4)
  - EYELID OEDEMA [None]
  - MEDICATION ERROR [None]
  - PRURITUS GENERALISED [None]
  - RASH [None]
